FAERS Safety Report 9536643 (Version 1)
Quarter: 2013Q3

REPORT INFORMATION
  Report Type: Spontaneous
  Country: US (occurrence: US)
  Receive Date: 20130919
  Receipt Date: 20130919
  Transmission Date: 20140515
  Serious: Yes (Death, Other)
  Sender: FDA-Public Use
  Company Number: US-ASTRAZENECA-2013SE69769

PATIENT
  Age: 81 Year
  Sex: Male

DRUGS (2)
  1. ATACAND [Suspect]
     Indication: BLOOD PRESSURE ABNORMAL
     Route: 048
  2. TOOK 20 DIFFERENT PILLS [Concomitant]

REACTIONS (8)
  - Staphylococcal infection [Fatal]
  - Central nervous system infection [Fatal]
  - Loss of consciousness [Fatal]
  - Colon cancer [Unknown]
  - Panic attack [Unknown]
  - Blood glucose abnormal [Unknown]
  - Diabetes mellitus [Unknown]
  - Ulcer [Unknown]
